FAERS Safety Report 5594196-6 (Version None)
Quarter: 2008Q1

REPORT INFORMATION
  Report Type: 
  Country: None (occurrence: None)
  Receive Date: 20080115
  Receipt Date: 20071203
  Transmission Date: 20080703
  Serious: Yes (Hospitalization)
  Sender: FDA-Public Use
  Company Number: WAES 0712USA02368

PATIENT
  Age: 83 Year
  Sex: Male

DRUGS (8)
  1. CAP VORINOSTAT UNK [Suspect]
     Indication: MYELODYSPLASTIC SYNDROME
     Dosage: 400 MG/DAILY/PO; 400 MG/DAILY/PO
     Route: 048
     Dates: start: 20070921
  2. CAP VORINOSTAT UNK [Suspect]
     Indication: MYELODYSPLASTIC SYNDROME
     Dosage: 400 MG/DAILY/PO; 400 MG/DAILY/PO
     Route: 048
     Dates: start: 20071116
  3. IMODIUN [Concomitant]
  4. MIRALAX [Concomitant]
  5. REGLAN [Concomitant]
  6. VALTREX [Concomitant]
  7. ZOLOFT [Concomitant]
  8. ASPIRIN [Concomitant]

REACTIONS (10)
  - BENIGN PROSTATIC HYPERPLASIA [None]
  - CONFUSIONAL STATE [None]
  - CULTURE URINE POSITIVE [None]
  - CYSTITIS [None]
  - MENTAL STATUS CHANGES [None]
  - PNEUMONIA [None]
  - RENAL FAILURE ACUTE [None]
  - STAPHYLOCOCCAL INFECTION [None]
  - URINARY RETENTION [None]
  - URINARY TRACT INFECTION [None]
